FAERS Safety Report 8354801-8 (Version None)
Quarter: 2012Q2

REPORT INFORMATION
  Report Type: 
  Country: None (occurrence: None)
  Receive Date: 20120511
  Receipt Date: 20120507
  Transmission Date: 20120825
  Serious: Yes (Other)
  Sender: FDA-Public Use
  Company Number: CH-ABBOTT-12P-151-0933220-00

PATIENT

DRUGS (1)
  1. HUMIRA [Suspect]
     Indication: RHEUMATOID ARTHRITIS

REACTIONS (5)
  - CARDIAC FAILURE [None]
  - ARRHYTHMIA [None]
  - TACHYCARDIA [None]
  - ATRIAL FIBRILLATION [None]
  - MYOPATHY [None]
